FAERS Safety Report 11928611 (Version 6)
Quarter: 2016Q2

REPORT INFORMATION
  Report Type: Report from Study
  Country: CH (occurrence: CH)
  Receive Date: 20160119
  Receipt Date: 20160509
  Transmission Date: 20160815
  Serious: Yes (Hospitalization)
  Sender: FDA-Public Use
  Company Number: CH-ABBVIE-16P-151-1540773-00

PATIENT
  Age: 74 Year
  Sex: Male

DRUGS (1)
  1. DUODOPA [Suspect]
     Active Substance: CARBIDOPA\LEVODOPA
     Indication: PARKINSON^S DISEASE
     Dosage: MD: 11ML, CD: 3ML/H, ED: 2ML, LOCK TIME BETWEEN EXTRA DOSES: 2.5H, 16H THERAPY
     Route: 065
     Dates: start: 20150609

REACTIONS (4)
  - Abnormal behaviour [Unknown]
  - Excessive granulation tissue [Not Recovered/Not Resolved]
  - Mental disorder [Unknown]
  - Family stress [Unknown]

NARRATIVE: CASE EVENT DATE: 20160113
